FAERS Safety Report 24807715 (Version 1)
Quarter: 2025Q1

REPORT INFORMATION
  Report Type: Report from Study
  Country: CA (occurrence: CA)
  Receive Date: 20250105
  Receipt Date: 20250105
  Transmission Date: 20250408
  Serious: Yes (Death, Other)
  Sender: ABBVIE
  Company Number: CA-ABBVIE-6070481

PATIENT
  Age: 70 Year
  Sex: Male

DRUGS (3)
  1. LUPRON [Suspect]
     Active Substance: LEUPROLIDE ACETATE
     Indication: Prostate cancer
     Dates: start: 20220121, end: 20241010
  2. LUPRON [Suspect]
     Active Substance: LEUPROLIDE ACETATE
     Dates: start: 20210928
  3. ROSUVASTATIN CALCIUM [Concomitant]
     Active Substance: ROSUVASTATIN CALCIUM
     Indication: Product used for unknown indication

REACTIONS (1)
  - Death [Fatal]

NARRATIVE: CASE EVENT DATE: 20241212
